FAERS Safety Report 18704730 (Version 1)
Quarter: 2021Q1

REPORT INFORMATION
  Report Type: Spontaneous
  Country: CN (occurrence: CN)
  Receive Date: 20210105
  Receipt Date: 20210105
  Transmission Date: 20210419
  Serious: Yes (Hospitalization)
  Sender: FDA-Public Use
  Company Number: CN-BAXTER-2020BAX026920

PATIENT
  Age: 29 Year
  Sex: Male
  Weight: 93 kg

DRUGS (8)
  1. 0.9% SODIUM CHLORIDE INJECTION [Suspect]
     Active Substance: SODIUM CHLORIDE
     Dosage: VINDESINE SULFATE (4MG) + 0.9% NS 20ML
     Route: 041
     Dates: start: 20201208, end: 20201208
  2. SODIUM CHLORIDE. [Concomitant]
     Active Substance: SODIUM CHLORIDE
     Indication: MEDICATION DILUTION
     Dosage: 0.9% SODIUM CHLORIDE INJECTION, 100ML + JUHELI OF 1.5 MG
     Route: 065
     Dates: start: 20201212, end: 20201213
  3. JUHELI [Concomitant]
     Indication: PROPHYLAXIS
     Dosage: 0.9% SODIUM CHLORIDE INJECTION, 100ML + JUHELI OF 1.5 MG
     Route: 065
     Dates: start: 20201212, end: 20201213
  4. ENDOXAN [Suspect]
     Active Substance: CYCLOPHOSPHAMIDE
     Indication: ACUTE LEUKAEMIA
     Dosage: CYCLOPHOSPHAMIDE (1200 MG) + 0.9% NS (250ML)
     Route: 041
     Dates: start: 20201208, end: 20201208
  5. 0.9% SODIUM CHLORIDE INJECTION [Suspect]
     Active Substance: SODIUM CHLORIDE
     Indication: MEDICATION DILUTION
     Dosage: CYCLOPHOSPHAMIDE (1200 MG) + 0.9% NS (250ML)
     Route: 041
     Dates: start: 20201208, end: 20201208
  6. XIAIKE [Suspect]
     Active Substance: VINDESINE
     Indication: ACUTE LEUKAEMIA
     Dosage: VINDESINE SULFATE (4MG) + 0.9% NS 20ML
     Route: 041
     Dates: start: 20201208, end: 20201208
  7. METHOTREXATE. [Suspect]
     Active Substance: METHOTREXATE
     Indication: ACUTE LEUKAEMIA
     Dosage: 1000 MG/10ML?1 VIAL
     Route: 037
     Dates: start: 20201210, end: 20201210
  8. SAIDESA (CYTARABINE) [Suspect]
     Active Substance: CYTARABINE
     Indication: ACUTE LEUKAEMIA
     Dosage: 100 MG?1 VIAL
     Route: 037
     Dates: start: 20201210, end: 20201210

REACTIONS (1)
  - Myelosuppression [Recovering/Resolving]

NARRATIVE: CASE EVENT DATE: 20201214
